FAERS Safety Report 5533037-X (Version None)
Quarter: 2007Q4

REPORT INFORMATION
  Report Type: 
  Country: None (occurrence: None)
  Receive Date: 20071204
  Receipt Date: 20071127
  Transmission Date: 20080405
  Serious: Yes (Death, Other)
  Sender: FDA-Public Use
  Company Number: JP-ELI_LILLY_AND_COMPANY-JP200711004094

PATIENT
  Sex: Male
  Weight: 71.4 kg

DRUGS (6)
  1. PEMETREXED [Suspect]
     Indication: PLEURAL MESOTHELIOMA MALIGNANT RECURRENT
     Dosage: 850 MG, OTHER
     Route: 042
     Dates: start: 20070312, end: 20070312
  2. CISPLATIN [Suspect]
     Indication: PLEURAL MESOTHELIOMA MALIGNANT RECURRENT
     Dosage: 100 MG, OTHER
     Route: 042
     Dates: start: 20070312, end: 20070312
  3. CIBENOL [Concomitant]
     Indication: ATRIAL FIBRILLATION
     Dosage: 200 MG, UNK
     Route: 048
     Dates: end: 20070318
  4. WARFARIN SODIUM [Concomitant]
     Indication: ATRIAL FIBRILLATION
     Dosage: 0.75 MG, UNK
     Route: 048
     Dates: end: 20070318
  5. GASTER D /JPN/ [Concomitant]
     Dosage: 10 MG, UNK
     Route: 048
     Dates: end: 20070318
  6. DUROTEP [Concomitant]
     Indication: CANCER PAIN
     Dosage: 5 MG, UNK
     Route: 062
     Dates: start: 20070301, end: 20070318

REACTIONS (4)
  - CARDIAC FAILURE [None]
  - INFECTION [None]
  - NEUTROPENIA [None]
  - PLATELET COUNT DECREASED [None]
